FAERS Safety Report 7494760-3 (Version None)
Quarter: 2011Q2

REPORT INFORMATION
  Report Type: 
  Country: None (occurrence: None)
  Receive Date: 20110520
  Receipt Date: 20110511
  Transmission Date: 20111010
  Serious: Yes (Other)
  Sender: FDA-Public Use
  Company Number: CN-ASTRAZENECA-2011SE26150

PATIENT
  Age: 52 Year
  Sex: Male

DRUGS (9)
  1. GEFITINIB [Suspect]
     Indication: LUNG NEOPLASM MALIGNANT
     Route: 048
     Dates: start: 20070423, end: 20070501
  2. LAMIVUDINE [Concomitant]
     Indication: HEPATITIS VIRAL
  3. INFLIXIMAB [Concomitant]
     Indication: IMMUNOSUPPRESSANT DRUG THERAPY
  4. MYCOPHENOLATE MOFETIL [Concomitant]
     Indication: IMMUNOSUPPRESSANT DRUG THERAPY
  5. URSODIOL [Concomitant]
     Indication: LIVER DISORDER
  6. URSODIOL [Concomitant]
     Indication: JAUNDICE
  7. TACROLIMUS [Concomitant]
     Indication: IMMUNOSUPPRESSANT DRUG THERAPY
  8. SILYMARIN [Concomitant]
     Indication: LIVER DISORDER
  9. BAILING [Concomitant]
     Indication: IMMUNOMODULATORY THERAPY

REACTIONS (5)
  - HAEMOGLOBIN DECREASED [None]
  - BLOOD URINE PRESENT [None]
  - RED BLOOD CELL COUNT DECREASED [None]
  - UROBILINOGEN URINE INCREASED [None]
  - HAEMOLYSIS [None]
